FAERS Safety Report 5508736-6 (Version None)
Quarter: 2007Q4

REPORT INFORMATION
  Report Type: 
  Country: None (occurrence: None)
  Receive Date: 20071031
  Receipt Date: 20070608
  Transmission Date: 20080405
  Serious: No
  Sender: FDA-Public Use
  Company Number: 2007PV032998

PATIENT
  Age: 47 Year
  Sex: Female

DRUGS (6)
  1. SYMLIN [Suspect]
     Indication: TYPE 1 DIABETES MELLITUS
     Dosage: 24 MCG;SC ; 15 MCG;SC
     Route: 058
     Dates: start: 20070601, end: 20070606
  2. SYMLIN [Suspect]
     Indication: TYPE 1 DIABETES MELLITUS
     Dosage: 24 MCG;SC ; 15 MCG;SC
     Route: 058
     Dates: start: 20070607
  3. COREG [Concomitant]
  4. ATACAND [Concomitant]
  5. SYNTHROID [Concomitant]
  6. HUMALOG [Concomitant]

REACTIONS (2)
  - ABDOMINAL PAIN UPPER [None]
  - NON-CARDIAC CHEST PAIN [None]
